FAERS Safety Report 7280812-X (Version None)
Quarter: 2011Q1

REPORT INFORMATION
  Report Type: 
  Country: None (occurrence: None)
  Receive Date: 20110208
  Receipt Date: 20110201
  Transmission Date: 20110831
  Serious: Yes (Other)
  Sender: FDA-Public Use
  Company Number: US-BRISTOL-MYERS SQUIBB COMPANY-15509011

PATIENT

DRUGS (1)
  1. SPRYCEL [Suspect]
     Indication: CHRONIC MYELOID LEUKAEMIA

REACTIONS (1)
  - BILE DUCT OBSTRUCTION [None]
